FAERS Safety Report 16697055 (Version 6)
Quarter: 2020Q1

REPORT INFORMATION
  Report Type: Spontaneous
  Country: US (occurrence: US)
  Receive Date: 20190813
  Receipt Date: 20200317
  Transmission Date: 20200409
  Serious: Yes (Other)
  Sender: FDA-Public Use
  Company Number: US-PFIZER INC-2019287592

PATIENT
  Age: 59 Year
  Sex: Female
  Weight: 80 kg

DRUGS (1)
  1. LYRICA [Suspect]
     Active Substance: PREGABALIN
     Indication: NEURALGIA
     Dosage: 75 MG, 2X/DAY
     Route: 048
     Dates: start: 20190613

REACTIONS (4)
  - Pneumonia [Unknown]
  - Visual impairment [Not Recovered/Not Resolved]
  - Malaise [Unknown]
  - Condition aggravated [Not Recovered/Not Resolved]
